FAERS Safety Report 12263040 (Version 3)
Quarter: 2016Q2

REPORT INFORMATION
  Report Type: Spontaneous
  Country: US (occurrence: US)
  Receive Date: 20160413
  Receipt Date: 20160629
  Transmission Date: 20160815
  Serious: No
  Sender: FDA-Public Use
  Company Number: US-PFIZER INC-2016206071

PATIENT
  Age: 65 Year
  Sex: Female
  Weight: 58 kg

DRUGS (2)
  1. CALCIUM W/VITAMIN D [Concomitant]
     Active Substance: CALCIUM\VITAMIN D
  2. LYRICA [Suspect]
     Active Substance: PREGABALIN
     Indication: HERPES ZOSTER
     Dosage: UNK (TAKING ONE IN THE MORNING AND TWO TWELVE HOURS LATER)
     Route: 048
     Dates: start: 20160406

REACTIONS (5)
  - Swelling [Unknown]
  - Vision blurred [Not Recovered/Not Resolved]
  - Drug effect incomplete [Unknown]
  - Depression [Unknown]
  - Oedema [Unknown]

NARRATIVE: CASE EVENT DATE: 20160407
